FAERS Safety Report 5546807-9 (Version None)
Quarter: 2007Q4

REPORT INFORMATION
  Report Type: 
  Country: None (occurrence: None)
  Receive Date: 20071211
  Receipt Date: 20071205
  Transmission Date: 20080405
  Serious: Yes (Other)
  Sender: FDA-Public Use
  Company Number: B0496850A

PATIENT
  Sex: Female

DRUGS (2)
  1. ORLISTAT [Suspect]
     Route: 065
     Dates: start: 20071115, end: 20071117
  2. VITAMIN E [Concomitant]

REACTIONS (1)
  - ANAL HAEMORRHAGE [None]
